FAERS Safety Report 11364794 (Version 3)
Quarter: 2015Q3

REPORT INFORMATION
  Report Type: Report from Study
  Country: JP (occurrence: JP)
  Receive Date: 20150811
  Receipt Date: 20150922
  Transmission Date: 20151125
  Serious: Yes (Death, Hospitalization, Other)
  Sender: FDA-Public Use
  Company Number: PHJP2015JP013271

PATIENT
  Age: 86 Year
  Sex: Male
  Weight: 42 kg

DRUGS (6)
  1. NORVASC [Concomitant]
     Active Substance: AMLODIPINE BESYLATE
     Indication: HYPERTENSION
     Dosage: 5 MG, QD
     Route: 048
     Dates: end: 20150506
  2. WARFARIN [Concomitant]
     Active Substance: WARFARIN
     Indication: PROPHYLAXIS
     Dosage: 0.5 MG, QD
     Route: 048
     Dates: end: 20150506
  3. HYALEIN [Concomitant]
     Active Substance: HYALURONATE SODIUM
     Indication: PROPHYLAXIS
     Dosage: 0.5 MG, QID
     Route: 047
     Dates: end: 20150506
  4. MYSLEE [Concomitant]
     Active Substance: ZOLPIDEM TARTRATE
     Indication: INSOMNIA
     Dosage: 10 MG, QD
     Route: 048
     Dates: end: 20150506
  5. RENIVACE [Concomitant]
     Active Substance: ENALAPRIL
     Indication: HYPERTENSION
     Dosage: 5 MG, QD
     Route: 048
     Dates: end: 20150506
  6. ULTIBRO INHALATION CAPSULES [Suspect]
     Active Substance: GLYCOPYRRONIUM\INDACATEROL
     Indication: CHRONIC OBSTRUCTIVE PULMONARY DISEASE
     Dosage: 1 DF, QD
     Route: 055
     Dates: start: 20140703, end: 20150506

REACTIONS (6)
  - Dyspnoea [Fatal]
  - Aortic aneurysm rupture [Unknown]
  - Cardiac failure acute [Fatal]
  - Back pain [Unknown]
  - Blood pressure increased [Fatal]
  - Cardio-respiratory arrest [Fatal]

NARRATIVE: CASE EVENT DATE: 20150506
